FAERS Safety Report 21173183 (Version 1)
Quarter: 2022Q3

REPORT INFORMATION
  Report Type: Spontaneous
  Country: US (occurrence: US)
  Receive Date: 20220804
  Receipt Date: 20220804
  Transmission Date: 20221027
  Serious: Yes (Hospitalization, Other)
  Sender: FDA-Public Use
  Company Number: US-GLAND PHARMA LIMITED-2022US003747

PATIENT
  Age: 50 Year
  Sex: Female

DRUGS (2)
  1. DOXORUBICIN HYDROCHLORIDE [Suspect]
     Active Substance: DOXORUBICIN HYDROCHLORIDE
     Indication: Hepatocellular carcinoma
     Dosage: 150 MG VIA TRANSARTERIAL CHEMOEMBOLIZATION
     Route: 050
  2. OXYGEN [Concomitant]
     Active Substance: OXYGEN
     Indication: Hepatopulmonary syndrome
     Dosage: 6 L
     Route: 065

REACTIONS (4)
  - Pulmonary alveolar haemorrhage [Unknown]
  - Neutropenia [Recovered/Resolved]
  - Incorrect route of product administration [Unknown]
  - Off label use [Unknown]
